FAERS Safety Report 25854939 (Version 1)
Quarter: 2025Q3

REPORT INFORMATION
  Report Type: Spontaneous
  Country: US (occurrence: US)
  Receive Date: 20250927
  Receipt Date: 20250927
  Transmission Date: 20251021
  Serious: No
  Sender: SANOFI AVENTIS
  Company Number: US-SA-2025SA286735

PATIENT
  Sex: Male

DRUGS (11)
  1. DUPIXENT [Suspect]
     Active Substance: DUPILUMAB
     Indication: Asthma
     Dosage: 300 MG, QOW
     Route: 058
     Dates: start: 202508
  2. ADVAIR HFA [Concomitant]
     Active Substance: FLUTICASONE PROPIONATE\SALMETEROL XINAFOATE
  3. ASPIRIN [Concomitant]
     Active Substance: ASPIRIN
  4. DIGOXIN [Concomitant]
     Active Substance: DIGOXIN
  5. FARXIGA [Concomitant]
     Active Substance: DAPAGLIFLOZIN PROPANEDIOL
  6. LINZESS [Concomitant]
     Active Substance: LINACLOTIDE
  7. METOPROLOL [Concomitant]
     Active Substance: METOPROLOL
  8. ROSUVASTATIN [Concomitant]
     Active Substance: ROSUVASTATIN
  9. SPIRIVA [Concomitant]
     Active Substance: TIOTROPIUM BROMIDE MONOHYDRATE
  10. TAMSULOSIN [Concomitant]
     Active Substance: TAMSULOSIN
  11. TIOTROPIUM [Concomitant]
     Active Substance: TIOTROPIUM

REACTIONS (1)
  - Nasopharyngitis [Recovered/Resolved]
